FAERS Safety Report 8529908-2 (Version None)
Quarter: 2012Q3

REPORT INFORMATION
  Report Type: 
  Country: None (occurrence: None)
  Receive Date: 20120723
  Receipt Date: 20120711
  Transmission Date: 20120928
  Serious: Yes (Hospitalization, Other)
  Sender: FDA-Public Use
  Company Number: US-GENZYME-LEUK-1000219

PATIENT
  Age: 71 Year
  Sex: Male
  Weight: 91 kg

DRUGS (35)
  1. ANTINEOPLASTIC AGENTS [Suspect]
     Dosage: 10 MG/KG, 90 MINUTES ON DAY 1, Q12 WEEKS
     Route: 042
  2. HYDROMORPHONE HCL [Concomitant]
     Indication: PRODUCT USED FOR UNKNOWN INDICATION
  3. PREDNISONE [Concomitant]
     Dosage: UNK, LOW DOSE
     Route: 065
     Dates: start: 20120619
  4. SODIUM CHLORIDE [Concomitant]
     Indication: PRODUCT USED FOR UNKNOWN INDICATION
     Dosage: 1000 ML, Q10HR
     Route: 042
  5. SODIUM CHLORIDE [Concomitant]
     Indication: PRODUCT USED FOR UNKNOWN INDICATION
     Dosage: 1000 ML, Q1HR
     Route: 042
  6. LEUKINE [Suspect]
     Dosage: 250 MCG/DAY, ON DAY 1-14
     Route: 058
  7. ANTINEOPLASTIC AGENTS [Suspect]
     Dosage: 10 MG/KG, ONCE
     Route: 042
     Dates: start: 20110913, end: 20110913
  8. ANTINEOPLASTIC AGENTS [Suspect]
     Dosage: 10 MG/KG, ONCE
     Route: 042
     Dates: start: 20110802, end: 20110802
  9. OMEPRAZOLE [Concomitant]
     Indication: PRODUCT USED FOR UNKNOWN INDICATION
     Dosage: 20 MG, BID
     Route: 048
  10. DIPHENHYDRAMINE HCL [Concomitant]
     Indication: PRODUCT USED FOR UNKNOWN INDICATION
     Dosage: 25 MG, UNK, SD ONE
     Route: 048
  11. PEPCID [Concomitant]
     Dosage: 20 MG, ONCE
     Route: 042
  12. LEUKINE [Suspect]
     Indication: MALIGNANT MELANOMA
     Dosage: 250 MCG, QD
     Route: 058
     Dates: start: 20111004, end: 20111018
  13. ANTINEOPLASTIC AGENTS [Suspect]
     Indication: MALIGNANT MELANOMA
     Dosage: 10 MG/KG, ONCE
     Route: 042
     Dates: start: 20111004, end: 20111004
  14. ENOXAPARIN SODIUM [Concomitant]
     Indication: PRODUCT USED FOR UNKNOWN INDICATION
     Dosage: 40 MG, QD
     Route: 058
  15. OXYCODONE HYDROCHLORIDE [Concomitant]
     Indication: PRODUCT USED FOR UNKNOWN INDICATION
     Dosage: 5-10 MG, Q6HR
     Route: 048
  16. ZOLPIDEM TARTRATE [Concomitant]
     Indication: PRODUCT USED FOR UNKNOWN INDICATION
     Dosage: 10 MG, UNK
     Route: 048
  17. PEPCID [Concomitant]
     Dosage: 50 MG, 100ML/ HR
     Route: 042
  18. LEUKINE [Suspect]
     Dosage: 250 MCG, QD
     Route: 058
     Dates: start: 20110913, end: 20110926
  19. LEUKINE [Suspect]
     Dosage: 250 MCG, QD
     Route: 058
     Dates: start: 20110802, end: 20110815
  20. CLOBETASOL PROPIONATE [Concomitant]
     Indication: PRODUCT USED FOR UNKNOWN INDICATION
  21. OXYCODONE HYDROCHLORIDE [Concomitant]
     Dosage: 5 MG, Q4HR
     Route: 048
     Dates: end: 20120617
  22. LORAZEPAM [Concomitant]
     Indication: PRODUCT USED FOR UNKNOWN INDICATION
     Dosage: 1 MG, UNK
     Route: 048
  23. FAMOTIDINE [Concomitant]
     Indication: PRODUCT USED FOR UNKNOWN INDICATION
     Dosage: 20 MG, QD
     Route: 048
  24. POLYMYXIN/ TRIMETHOPRIM SULPHATE [Concomitant]
     Indication: PRODUCT USED FOR UNKNOWN INDICATION
     Dosage: 1 DROP EACH EYE, Q3HR
     Route: 047
  25. PREDNISONE [Concomitant]
     Indication: PRODUCT USED FOR UNKNOWN INDICATION
     Dosage: 5 MG, UNK, SD ONE
     Route: 048
  26. LEUKINE [Suspect]
     Dosage: 250 MCG, QD
     Route: 058
     Dates: start: 20110823, end: 20110905
  27. ANTINEOPLASTIC AGENTS [Suspect]
     Dosage: 10 MG/KG, ONCE
     Route: 042
     Dates: start: 20110823, end: 20110823
  28. COSYNTROPIN [Concomitant]
     Indication: PRODUCT USED FOR UNKNOWN INDICATION
     Dosage: 250 MCG, UNK, SD ONE
     Route: 042
  29. OMEPRAZOLE [Concomitant]
     Dosage: 20 MG, BID
     Route: 048
     Dates: end: 20120618
  30. NAPHAZOLINE HYDROCHLORIDE/PHENIRAMINE MALEATE [Concomitant]
     Indication: PRODUCT USED FOR UNKNOWN INDICATION
     Dosage: 1-2 DROPS EACH EYE, 28 HOURS
     Route: 047
  31. ONDANSETRON HYDROCHLORIDE [Concomitant]
     Indication: PRODUCT USED FOR UNKNOWN INDICATION
     Dosage: 4 MG, Q8HR
     Route: 042
  32. PEPCID [Concomitant]
     Indication: PRODUCT USED FOR UNKNOWN INDICATION
     Dosage: 20 MG, ONCE
     Route: 042
  33. DOCUSATE SODIUM [Concomitant]
     Indication: PRODUCT USED FOR UNKNOWN INDICATION
     Dosage: 100 MG, BID
     Route: 048
  34. GENTAMICIN SULFATE [Concomitant]
     Indication: PRODUCT USED FOR UNKNOWN INDICATION
     Dosage: 1-2 DROPS EACH EYE, Q4HR
     Route: 047
  35. SODIUM CHLORIDE [Concomitant]
     Dosage: 1000 ML, Q1HR
     Route: 042

REACTIONS (28)
  - ANXIETY [None]
  - ALANINE AMINOTRANSFERASE INCREASED [None]
  - LUNG DISORDER [None]
  - ADRENAL INSUFFICIENCY [None]
  - ENTEROCOLITIS [None]
  - MYOCARDIAL INFARCTION [None]
  - ANGINA UNSTABLE [None]
  - ASPARTATE AMINOTRANSFERASE INCREASED [None]
  - DIZZINESS [None]
  - HYPOTENSION [None]
  - CHOLECYSTITIS [None]
  - SINUS TACHYCARDIA [None]
  - SINUS CONGESTION [None]
  - PNEUMONIA [None]
  - VOMITING [None]
  - HEADACHE [None]
  - PULMONARY OEDEMA [None]
  - TRANSAMINASES INCREASED [None]
  - MALAISE [None]
  - DYSPNOEA [None]
  - METASTATIC MALIGNANT MELANOMA [None]
  - RHINORRHOEA [None]
  - COUGH [None]
  - FATIGUE [None]
  - SYNCOPE [None]
  - HEPATIC STEATOSIS [None]
  - ABDOMINAL PAIN [None]
  - NAUSEA [None]
